FAERS Safety Report 12738323 (Version 1)
Quarter: 2016Q3

REPORT INFORMATION
  Report Type: Spontaneous
  Country: US (occurrence: US)
  Receive Date: 20160913
  Receipt Date: 20160913
  Transmission Date: 20161109
  Serious: No
  Sender: FDA-Public Use
  Company Number: US-PFIZER INC-2016423104

PATIENT
  Age: 47 Year
  Sex: Female
  Weight: 115.2 kg

DRUGS (2)
  1. LYRICA [Suspect]
     Active Substance: PREGABALIN
     Indication: MENTAL DISORDER
     Dosage: UNK
     Dates: start: 2008, end: 2011
  2. LYRICA [Suspect]
     Active Substance: PREGABALIN
     Indication: BIPOLAR DISORDER
     Dosage: UNK

REACTIONS (4)
  - Product use issue [Not Recovered/Not Resolved]
  - Abnormal behaviour [Unknown]
  - Vision blurred [Recovered/Resolved]
  - Feeling abnormal [Unknown]

NARRATIVE: CASE EVENT DATE: 2008
